FAERS Safety Report 12336390 (Version 3)
Quarter: 2016Q3

REPORT INFORMATION
  Report Type: Report from Study
  Country: US (occurrence: US)
  Receive Date: 20160505
  Receipt Date: 20160726
  Transmission Date: 20161109
  Serious: Yes (Death, Other)
  Sender: FDA-Public Use
  Company Number: US-AMGEN-USASL2016056134

PATIENT
  Age: 76 Year
  Sex: Female
  Weight: 81.6 kg

DRUGS (1)
  1. PROLIA [Suspect]
     Active Substance: DENOSUMAB
     Indication: OSTEOPOROSIS
     Dosage: 60 MG/ML, Q6MO
     Route: 058
     Dates: start: 20151117

REACTIONS (14)
  - Ingrowing nail [Unknown]
  - Joint dislocation [Unknown]
  - Gastroenteritis viral [Unknown]
  - Sleep disorder due to general medical condition, insomnia type [Unknown]
  - Arthralgia [Unknown]
  - Essential hypertension [Unknown]
  - Death [Fatal]
  - Post-traumatic stress disorder [Unknown]
  - Onychomycosis [Unknown]
  - Acute sinusitis [Unknown]
  - Rhinitis allergic [Unknown]
  - Cardiac disorder [Unknown]
  - Dacryostenosis acquired [Unknown]
  - Depression [Unknown]

NARRATIVE: CASE EVENT DATE: 20160209
